FAERS Safety Report 9409583 (Version 2)
Quarter: 2013Q3

REPORT INFORMATION
  Report Type: Spontaneous
  Country: US (occurrence: None)
  Receive Date: 20130716
  Receipt Date: 20130904
  Transmission Date: 20140515
  Serious: Yes (Other)
  Sender: FDA-Public Use
  Company Number: 2013SA070076

PATIENT
  Age: 30 Year
  Sex: Male
  Weight: 99.79 kg

DRUGS (1)
  1. ICY HOT NO MESS [Suspect]
     Indication: PRODUCT USED FOR UNKNOWN INDICATION
     Dosage: UNKNOWN
     Dates: start: 20130707, end: 20130707

REACTIONS (5)
  - Blister [None]
  - Thermal burn [None]
  - Erythema [None]
  - Activities of daily living impaired [None]
  - Myalgia [None]
